FAERS Safety Report 6627940-7 (Version None)
Quarter: 2010Q1

REPORT INFORMATION
  Report Type: 
  Country: None (occurrence: None)
  Receive Date: 20100311
  Receipt Date: 20090408
  Transmission Date: 20100710
  Serious: No
  Sender: FDA-Public Use
  Company Number: A0777735A

PATIENT
  Age: 68 Year
  Sex: Male

DRUGS (7)
  1. NICORETTE (MINT) [Suspect]
     Dates: start: 20090407, end: 20090407
  2. ADVAIR DISKUS 100/50 [Concomitant]
  3. SINGULAIR [Concomitant]
  4. XOPENEX [Concomitant]
  5. PULMICORT [Concomitant]
  6. IPRATROPIUM BROMIDE [Concomitant]
  7. THEO-24 [Concomitant]

REACTIONS (2)
  - DYSPNOEA [None]
  - OESOPHAGEAL STENOSIS [None]
